FAERS Safety Report 5465594-6 (Version None)
Quarter: 2007Q3

REPORT INFORMATION
  Report Type: 
  Country: None (occurrence: None)
  Receive Date: 20070919
  Receipt Date: 20070919
  Transmission Date: 20080115
  Serious: Yes (Other)
  Sender: FDA-Public Use
  Company Number: None

PATIENT
  Age: 11 Year
  Sex: Female
  Weight: 40.8237 kg

DRUGS (4)
  1. PREVACID [Suspect]
     Indication: GASTROOESOPHAGEAL REFLUX DISEASE
     Dosage: 30 MG ONCE A DAY PO
     Route: 048
     Dates: start: 20060603, end: 20070605
  2. PREVACID [Suspect]
     Indication: STOMACH DISCOMFORT
     Dosage: 30 MG ONCE A DAY PO
     Route: 048
     Dates: start: 20060603, end: 20070605
  3. PREVACID [Suspect]
     Indication: GASTROOESOPHAGEAL REFLUX DISEASE
     Dosage: 15 MG. TWICE A DAY  PO
     Route: 048
     Dates: start: 20060606, end: 20060611
  4. PREVACID [Suspect]
     Indication: STOMACH DISCOMFORT
     Dosage: 15 MG. TWICE A DAY  PO
     Route: 048
     Dates: start: 20060606, end: 20060611

REACTIONS (3)
  - CONDITION AGGRAVATED [None]
  - MALAISE [None]
  - PAIN [None]
